FAERS Safety Report 24462509 (Version 1)
Quarter: 2024Q4

REPORT INFORMATION
  Report Type: Spontaneous
  Country: RU (occurrence: RU)
  Receive Date: 20241018
  Receipt Date: 20241018
  Transmission Date: 20250114
  Serious: Yes (Hospitalization, Other)
  Sender: RANBAXY
  Company Number: RU-SUN PHARMACEUTICAL INDUSTRIES LTD-2024R1-473446

PATIENT
  Age: 72 Year
  Sex: Male

DRUGS (3)
  1. RIVAROXABAN [Suspect]
     Active Substance: RIVAROXABAN
     Indication: Atrial fibrillation
     Dosage: 15 MILLIGRAM, DAILY
     Route: 065
  2. ASPIRIN [Suspect]
     Active Substance: ASPIRIN
     Indication: Atrial fibrillation
     Dosage: 75 MILLIGRAM, DAILY
     Route: 065
  3. TICAGRELOR [Suspect]
     Active Substance: TICAGRELOR
     Indication: Atrial fibrillation
     Dosage: 90 MILLIGRAM 2 TIMES
     Route: 065

REACTIONS (1)
  - Intestinal haemorrhage [Unknown]
